FAERS Safety Report 5499841-1 (Version None)
Quarter: 2007Q4

REPORT INFORMATION
  Report Type: 
  Country: None (occurrence: None)
  Receive Date: 20071026
  Receipt Date: 20071015
  Transmission Date: 20080405
  Serious: Yes (Hospitalization)
  Sender: FDA-Public Use
  Company Number: FI-PFIZER INC-2007085914

PATIENT
  Age: 24 Year
  Sex: Female

DRUGS (5)
  1. CHAMPIX [Suspect]
     Indication: SMOKING CESSATION THERAPY
     Route: 048
  2. CIPRALEX [Concomitant]
     Route: 048
  3. MIRTAZAPINE [Concomitant]
     Route: 048
  4. DUREKAL [Concomitant]
     Route: 048
  5. METALAX [Concomitant]
     Route: 048

REACTIONS (2)
  - ANURIA [None]
  - BLOOD CREATININE INCREASED [None]
